FAERS Safety Report 7152842-X (Version None)
Quarter: 2010Q4

REPORT INFORMATION
  Report Type: 
  Country: None (occurrence: None)
  Receive Date: 20101209
  Receipt Date: 20101209
  Transmission Date: 20110411
  Serious: No
  Sender: FDA-Public Use
  Company Number: None

PATIENT
  Sex: Female
  Weight: 43.0917 kg

DRUGS (1)
  1. ALONDRONATE (A BISPHOSPHA [Suspect]
     Indication: OSTEOPOROSIS PROPHYLAXIS
     Dosage: 70 MG 1 PER WEEK (APPROX JUNE - JULY 2010

REACTIONS (5)
  - ALOPECIA [None]
  - HYPERKERATOSIS [None]
  - JAW DISORDER [None]
  - PAIN [None]
  - SENSORY DISTURBANCE [None]
